FAERS Safety Report 22098660 (Version 2)
Quarter: 2024Q1

REPORT INFORMATION
  Report Type: Spontaneous
  Country: US (occurrence: US)
  Receive Date: 20230315
  Receipt Date: 20240206
  Transmission Date: 20240410
  Serious: Yes (Life-Threatening, Hospitalization, Other)
  Sender: FDA-Public Use
  Company Number: US-GLAXOSMITHKLINE-US2023GSK036393

PATIENT

DRUGS (1)
  1. BUPROPION [Suspect]
     Active Substance: BUPROPION
     Indication: Major depression
     Dosage: 300 MG, QD
     Route: 048

REACTIONS (8)
  - Overdose [Recovering/Resolving]
  - Cardiotoxicity [Recovering/Resolving]
  - Unresponsive to stimuli [Recovering/Resolving]
  - Seizure [Recovering/Resolving]
  - Arrhythmia [Recovering/Resolving]
  - Cardiogenic shock [Recovered/Resolved]
  - Bundle branch block left [Recovering/Resolving]
  - Hypokinesia [Recovering/Resolving]

NARRATIVE: CASE EVENT DATE: 20210101
